FAERS Safety Report 6581914-3 (Version None)
Quarter: 2010Q1

REPORT INFORMATION
  Report Type: 
  Country: None (occurrence: None)
  Receive Date: 20100212
  Receipt Date: 20100212
  Transmission Date: 20100710
  Serious: Yes (Hospitalization)
  Sender: FDA-Public Use
  Company Number: None

PATIENT
  Age: 72 Year
  Sex: Female
  Weight: 72 kg

DRUGS (2)
  1. DILTIAZEM HCL [Suspect]
     Indication: HYPERTENSION
     Dosage: 180 MG EVERY DAY PO
     Route: 048
     Dates: start: 20080101, end: 20090808
  2. CYCLOSPORINE [Suspect]
     Dosage: 50 MG BID PO
     Route: 048
     Dates: start: 20071201

REACTIONS (5)
  - ATRIOVENTRICULAR BLOCK SECOND DEGREE [None]
  - BRADYCARDIA [None]
  - DIZZINESS [None]
  - FALL [None]
  - URINARY TRACT INFECTION [None]
